FAERS Safety Report 16857460 (Version 2)
Quarter: 2020Q3

REPORT INFORMATION
  Report Type: Spontaneous
  Country: US (occurrence: US)
  Receive Date: 20190926
  Receipt Date: 20200724
  Transmission Date: 20201102
  Serious: Yes (Hospitalization, Other)
  Sender: FDA-Public Use
  Company Number: US-GILEAD-2019-0429287

PATIENT
  Age: 46 Year
  Sex: Female
  Weight: 89.34 kg

DRUGS (30)
  1. ATRIPLA [Suspect]
     Active Substance: EFAVIRENZ\EMTRICITABINE\TENOFOVIR DISOPROXIL FUMARATE
     Indication: HIV INFECTION
     Dosage: UNK
     Route: 048
     Dates: start: 2006
  2. METOPROLOL. [Concomitant]
     Active Substance: METOPROLOL
  3. TRIUMEQ [Concomitant]
     Active Substance: ABACAVIR SULFATE\DOLUTEGRAVIR SODIUM\LAMIVUDINE
  4. PREDNISONE. [Concomitant]
     Active Substance: PREDNISONE
  5. NORVIR [Concomitant]
     Active Substance: RITONAVIR
  6. VALACYCLOVIR HCL [Concomitant]
     Active Substance: VALACYCLOVIR HYDROCHLORIDE
  7. DOXYCYCLINE. [Concomitant]
     Active Substance: DOXYCYCLINE
  8. TRAMADOL. [Concomitant]
     Active Substance: TRAMADOL
  9. METRONIDAZOLE. [Concomitant]
     Active Substance: METRONIDAZOLE
  10. NAPROXEN. [Concomitant]
     Active Substance: NAPROXEN
  11. TRUVADA [Suspect]
     Active Substance: EMTRICITABINE\TENOFOVIR DISOPROXIL FUMARATE
     Indication: HIV INFECTION
     Dosage: UNK
     Route: 048
     Dates: start: 2006
  12. AMLODIPINE [Concomitant]
     Active Substance: AMLODIPINE BESYLATE
  13. VENTOLINE [SALBUTAMOL] [Concomitant]
     Active Substance: ALBUTEROL SULFATE
  14. PROMETHAZINE [Concomitant]
     Active Substance: PROMETHAZINE HYDROCHLORIDE
  15. MORPHINE [Concomitant]
     Active Substance: MORPHINE
  16. AZITHROMYCIN ANHYDROUS. [Concomitant]
     Active Substance: AZITHROMYCIN ANHYDROUS
  17. LEVOFLOXACIN. [Concomitant]
     Active Substance: LEVOFLOXACIN
  18. MUPIROCIN. [Concomitant]
     Active Substance: MUPIROCIN
  19. MEDROXYPROGESTERONE [Concomitant]
     Active Substance: MEDROXYPROGESTERONE
  20. PROPYLTHIOURACIL. [Concomitant]
     Active Substance: PROPYLTHIOURACIL
  21. MELOXICAM. [Concomitant]
     Active Substance: MELOXICAM
  22. OXYCODONE [Concomitant]
     Active Substance: OXYCODONE
  23. BENZONATATE. [Concomitant]
     Active Substance: BENZONATATE
  24. SYMBICORT [Concomitant]
     Active Substance: BUDESONIDE\FORMOTEROL FUMARATE DIHYDRATE
  25. ESTRADIOL. [Concomitant]
     Active Substance: ESTRADIOL
  26. ENOXAPARIN [Concomitant]
     Active Substance: ENOXAPARIN
  27. CLINDAMYCIN. [Concomitant]
     Active Substance: CLINDAMYCIN
  28. CIPROFLOXACIN. [Concomitant]
     Active Substance: CIPROFLOXACIN
  29. LEXIVA [Concomitant]
     Active Substance: FOSAMPRENAVIR CALCIUM
  30. CYCLOBENZAPRINE. [Concomitant]
     Active Substance: CYCLOBENZAPRINE

REACTIONS (11)
  - Economic problem [Not Recovered/Not Resolved]
  - Quality of life decreased [Not Recovered/Not Resolved]
  - Osteoporosis [Unknown]
  - Decreased activity [Not Recovered/Not Resolved]
  - Anxiety [Not Recovered/Not Resolved]
  - Chronic kidney disease [Not Recovered/Not Resolved]
  - Loss of personal independence in daily activities [Not Recovered/Not Resolved]
  - Immobile [Unknown]
  - Emotional distress [Not Recovered/Not Resolved]
  - Anhedonia [Not Recovered/Not Resolved]
  - Pain [Not Recovered/Not Resolved]
